FAERS Safety Report 11633040 (Version 1)
Quarter: 2015Q4

REPORT INFORMATION
  Report Type: Spontaneous
  Country: US (occurrence: US)
  Receive Date: 20151015
  Receipt Date: 20151015
  Transmission Date: 20160304
  Serious: No
  Sender: FDA-Public Use
  Company Number: US-ACTELION PHARMACEUTICALS US, INC.-A-NJ2015-125506

PATIENT
  Age: 61 Year
  Sex: Female

DRUGS (11)
  1. VALCHLOR [Suspect]
     Active Substance: MECHLORETHAMINE
     Indication: MYCOSIS FUNGOIDES
     Dosage: UNK, QD
     Route: 061
     Dates: start: 20150830, end: 2015
  2. ESTROGEL [Concomitant]
     Active Substance: ESTRADIOL
  3. GLUCOSAMINE [Concomitant]
     Active Substance: GLUCOSAMINE
  4. PROAIR HFA [Concomitant]
     Active Substance: ALBUTEROL SULFATE
  5. CENTRUM [Concomitant]
     Active Substance: VITAMINS
  6. SINGULAIR [Concomitant]
     Active Substance: MONTELUKAST SODIUM
  7. LEXAPRO [Concomitant]
     Active Substance: ESCITALOPRAM OXALATE
  8. VITAMIN D3 [Concomitant]
     Active Substance: CHOLECALCIFEROL
  9. LIPITOR [Concomitant]
     Active Substance: ATORVASTATIN CALCIUM
  10. ASPIRIN. [Concomitant]
     Active Substance: ASPIRIN
  11. FLONASE [Concomitant]
     Active Substance: FLUTICASONE PROPIONATE

REACTIONS (1)
  - Application site irritation [Unknown]
